FAERS Safety Report 4908958-9 (Version None)
Quarter: 2006Q1

REPORT INFORMATION
  Report Type: 
  Country: None (occurrence: None)
  Receive Date: 20060209
  Receipt Date: 20060129
  Transmission Date: 20060701
  Serious: Yes (Other)
  Sender: FDA-Public Use
  Company Number: 2006013938

PATIENT
  Age: 43 Year
  Sex: Male
  Weight: 81.6475 kg

DRUGS (2)
  1. ROGAINE [Suspect]
     Indication: ALOPECIA
     Dosage: 1 ML TWICE A DAY, TOPICAL
     Route: 061
     Dates: start: 20060121, end: 20060125
  2. PAROXETINE HCL [Concomitant]

REACTIONS (3)
  - HEART RATE IRREGULAR [None]
  - HYPERHIDROSIS [None]
  - PALPITATIONS [None]
